FAERS Safety Report 5215625-3 (Version None)
Quarter: 2007Q1

REPORT INFORMATION
  Report Type: 
  Country: None (occurrence: None)
  Receive Date: 20070123
  Receipt Date: 20070112
  Transmission Date: 20070707
  Serious: Yes (Hospitalization)
  Sender: FDA-Public Use
  Company Number: 2007AP00365

PATIENT
  Age: 20156 Day
  Sex: Male
  Weight: 79 kg

DRUGS (16)
  1. CRESTOR [Suspect]
     Indication: HYPERCHOLESTEROLAEMIA
     Route: 048
     Dates: start: 20060818, end: 20061011
  2. CRESTOR [Suspect]
     Route: 048
     Dates: start: 20061012, end: 20061213
  3. CRESTOR [Suspect]
     Route: 048
     Dates: start: 20061214, end: 20061228
  4. GASTER D [Suspect]
     Indication: PROPHYLAXIS
     Route: 048
     Dates: end: 20061116
  5. PANALDINE [Suspect]
     Indication: THROMBOSIS PROPHYLAXIS
     Route: 048
     Dates: start: 20060810, end: 20061116
  6. ARTIST [Concomitant]
     Indication: HYPERTENSION
     Route: 048
     Dates: end: 20060817
  7. ARTIST [Concomitant]
     Route: 048
     Dates: start: 20060818, end: 20061226
  8. LASIX [Concomitant]
     Indication: HYPERTENSION
     Route: 048
     Dates: end: 20061116
  9. CONIEL [Concomitant]
     Indication: HYPERTENSION
     Route: 048
     Dates: end: 20061226
  10. NORVASC [Concomitant]
     Indication: HYPERTENSION
     Route: 048
     Dates: end: 20061226
  11. ASPIRIN [Concomitant]
     Indication: THROMBOSIS PROPHYLAXIS
     Route: 048
     Dates: end: 20061228
  12. SIGMART [Concomitant]
     Indication: ANGINA PECTORIS
     Route: 048
     Dates: end: 20061228
  13. OLMETEC [Concomitant]
     Indication: HYPERTENSION
     Route: 048
     Dates: end: 20061228
  14. AMARYL [Concomitant]
     Indication: DIABETES MELLITUS
     Route: 048
     Dates: end: 20061228
  15. PRAVASTATIN [Concomitant]
  16. BASEN OD [Concomitant]
     Indication: DIABETES MELLITUS
     Route: 048
     Dates: start: 20060818, end: 20060926

REACTIONS (2)
  - ANAEMIA [None]
  - PLATELET COUNT DECREASED [None]
